FAERS Safety Report 9659666 (Version 1)
Quarter: 2013Q4

REPORT INFORMATION
  Report Type: Spontaneous
  Country: GB (occurrence: GB)
  Receive Date: 20131031
  Receipt Date: 20131031
  Transmission Date: 20140711
  Serious: Yes (Hospitalization)
  Sender: FDA-Public Use
  Company Number: GB-JNJFOC-20131015558

PATIENT
  Age: 54 Year
  Sex: Male
  Weight: 69.5 kg

DRUGS (8)
  1. REMICADE [Suspect]
     Indication: UVEITIS
     Route: 042
     Dates: start: 20121112, end: 20121126
  2. REMICADE [Suspect]
     Indication: COLITIS ULCERATIVE
     Route: 042
     Dates: start: 20121112, end: 20121126
  3. AZATHIOPRINE [Suspect]
     Indication: UVEITIS
     Route: 048
     Dates: start: 20110427, end: 20121209
  4. AZATHIOPRINE [Suspect]
     Indication: COLITIS ULCERATIVE
     Route: 048
     Dates: start: 20110427, end: 20121209
  5. PENTASA [Suspect]
     Indication: PRODUCT USED FOR UNKNOWN INDICATION
     Route: 065
     Dates: start: 201208
  6. ALENDRONATE [Concomitant]
     Route: 065
  7. CALCEOS [Concomitant]
     Route: 065
  8. PRED FORTE [Concomitant]
     Route: 065

REACTIONS (4)
  - Renal failure acute [Recovered/Resolved]
  - Pancytopenia [Recovered/Resolved]
  - Sepsis [Recovered/Resolved]
  - Off label use [Unknown]
